FAERS Safety Report 7374372 (Version 2)
Quarter: 2012Q4

REPORT INFORMATION
  Report Type: 
  Country: US (occurrence: US)
  Receive Date: 20100503
  Receipt Date: 20121120
  Transmission Date: 20130627
  Serious: No
  Sender: FDA-Public Use
  Company Number: US-ASTRAZENECA-2009SE13690

PATIENT
  Age: 87 Year
  Sex: Male
  Weight: 68 kg

DRUGS (12)
  1. NEXIUM [Suspect]
     Indication: GASTROOESOPHAGEAL REFLUX DISEASE
     Route: 048
     Dates: start: 2004, end: 200909
  2. NEXIUM [Suspect]
     Indication: GASTROOESOPHAGEAL REFLUX DISEASE
     Route: 048
     Dates: start: 2007
  3. NEXIUM [Suspect]
     Indication: GASTROOESOPHAGEAL REFLUX DISEASE
     Route: 048
     Dates: start: 200909, end: 200909
  4. NEXIUM [Suspect]
     Indication: GASTROOESOPHAGEAL REFLUX DISEASE
     Route: 048
     Dates: start: 200909
  5. NEXIUM [Suspect]
     Indication: GASTROOESOPHAGEAL REFLUX DISEASE
     Route: 048
  6. PRILOSEC [Suspect]
     Indication: GASTROOESOPHAGEAL REFLUX DISEASE
     Route: 048
  7. BABY ASPIRIN [Concomitant]
  8. PPI [Concomitant]
  9. CENTRUM VITAMIN [Concomitant]
  10. ASA [Concomitant]
  11. MULTIVITAMIN [Concomitant]
  12. PREDNISONE [Concomitant]

REACTIONS (9)
  - Chest pain [Unknown]
  - Contusion [Unknown]
  - Cough [Recovering/Resolving]
  - Tremor [Unknown]
  - Increased tendency to bruise [Unknown]
  - Anaemia [Unknown]
  - Polymyalgia rheumatica [Unknown]
  - Intentional drug misuse [Unknown]
  - Gastrooesophageal reflux disease [Unknown]
